FAERS Safety Report 26040341 (Version 1)
Quarter: 2025Q4

REPORT INFORMATION
  Report Type: Spontaneous
  Country: RU (occurrence: RU)
  Receive Date: 20251113
  Receipt Date: 20251113
  Transmission Date: 20260118
  Serious: Yes (Other)
  Sender: RANBAXY
  Company Number: RU-SUN PHARMACEUTICAL INDUSTRIES LTD-2025R1-536322

PATIENT
  Age: 56 Year
  Sex: Female

DRUGS (4)
  1. OXALIPLATIN [Suspect]
     Active Substance: OXALIPLATIN
     Indication: Chemotherapy
     Dosage: UNK 85 MG/M2
     Route: 065
     Dates: start: 202010, end: 202103
  2. LEUCOVORIN CALCIUM [Suspect]
     Active Substance: LEUCOVORIN CALCIUM
     Indication: Chemotherapy
     Dosage: UNK 400 MG/M2
     Route: 042
     Dates: start: 202010, end: 202103
  3. FLUOROURACIL [Suspect]
     Active Substance: FLUOROURACIL
     Indication: Chemotherapy
     Dosage: UNK 400 MG/M2
     Route: 042
     Dates: start: 202010, end: 202103
  4. FLUOROURACIL [Suspect]
     Active Substance: FLUOROURACIL
     Dosage: UNK 2400 MG/M2
     Route: 042
     Dates: start: 202010, end: 202103

REACTIONS (5)
  - Metastasis [Unknown]
  - Constipation [Unknown]
  - Asthenia [Unknown]
  - Rectal tenesmus [Unknown]
  - Secretion discharge [Unknown]
